FAERS Safety Report 5616584-1 (Version None)
Quarter: 2008Q1

REPORT INFORMATION
  Report Type: 
  Country: None (occurrence: None)
  Receive Date: 20080207
  Receipt Date: 20070817
  Transmission Date: 20080703
  Serious: No
  Sender: FDA-Public Use
  Company Number: A0671268A

PATIENT
  Age: 58 Year
  Sex: Female

DRUGS (1)
  1. PAXIL CR [Suspect]
     Indication: DRUG USE FOR UNKNOWN INDICATION
     Dosage: 25MG UNKNOWN
     Route: 048
     Dates: start: 20070701

REACTIONS (1)
  - NONSPECIFIC REACTION [None]
